FAERS Safety Report 11296868 (Version 2)
Quarter: 2015Q4

REPORT INFORMATION
  Report Type: Spontaneous
  Country: US (occurrence: US)
  Receive Date: 20150722
  Receipt Date: 20151027
  Transmission Date: 20160304
  Serious: No
  Sender: FDA-Public Use
  Company Number: US-ELI_LILLY_AND_COMPANY-US201008002515

PATIENT
  Sex: Female

DRUGS (8)
  1. VITAMIN D [Concomitant]
     Active Substance: CHOLECALCIFEROL
     Dosage: 50000 D/F, MONTHLY (1/M)
  2. CALCIUM [Concomitant]
     Active Substance: CALCIUM
  3. RECLAST [Concomitant]
     Active Substance: ZOLEDRONIC ACID
  4. EVISTA [Suspect]
     Active Substance: RALOXIFENE HYDROCHLORIDE
     Indication: OSTEOPOROSIS
     Dosage: 60 MG, DAILY (1/D)
  5. OSCAL 500-D [Concomitant]
     Dosage: UNK, UNKNOWN
  6. FORTEO [Suspect]
     Active Substance: TERIPARATIDE
     Indication: OSTEOPOROSIS
     Dosage: 20 UG, DAILY (1/D)
     Dates: start: 20100624, end: 20101011
  7. IRON [Concomitant]
     Active Substance: IRON
  8. BONIVA [Concomitant]
     Active Substance: IBANDRONATE SODIUM

REACTIONS (25)
  - Vision blurred [Not Recovered/Not Resolved]
  - Chest pain [Unknown]
  - Injection site bruising [Unknown]
  - Injection site haemorrhage [Unknown]
  - Bone pain [Unknown]
  - Tooth disorder [Unknown]
  - Lacrimal disorder [Unknown]
  - Abdominal distension [Unknown]
  - Osteoporosis [Unknown]
  - Dizziness [Unknown]
  - Headache [Unknown]
  - Gastrooesophageal reflux disease [Unknown]
  - Back pain [Unknown]
  - Gait disturbance [Unknown]
  - Lung infiltration [Unknown]
  - Productive cough [Unknown]
  - Abdominal discomfort [Unknown]
  - Malaise [Unknown]
  - Fatigue [Not Recovered/Not Resolved]
  - Pulmonary congestion [Unknown]
  - Constipation [Not Recovered/Not Resolved]
  - Pain [Unknown]
  - Nausea [Not Recovered/Not Resolved]
  - Pain in extremity [Unknown]
  - Asthenia [Unknown]
